FAERS Safety Report 23691524 (Version 1)
Quarter: 2024Q2

REPORT INFORMATION
  Report Type: Spontaneous
  Country: IN (occurrence: IN)
  Receive Date: 20240401
  Receipt Date: 20240401
  Transmission Date: 20240716
  Serious: Yes (Hospitalization, Other)
  Sender: FDA-Public Use
  Company Number: IN-MLMSERVICE-2024031448838021

PATIENT
  Age: 23 Year
  Sex: Male
  Weight: 53 kg

DRUGS (5)
  1. MITOMYCIN [Suspect]
     Active Substance: MITOMYCIN
     Indication: Pseudomyxoma peritonei
     Dosage: HYPERTHERMIC INTRAPERITONEAL CHEMOTHERAPY
     Route: 033
  2. NOREPINEPHRINE [Suspect]
     Active Substance: NOREPINEPHRINE\NOREPINEPHRINE BITARTRATE
     Indication: Vasopressive therapy
     Dosage: WENT UP TO 0.8 UG/KG/MIN/USE OF HIGH DOSES OF VASOPRESSORS
  3. DOXORUBICIN [Suspect]
     Active Substance: DOXORUBICIN
     Indication: Pseudomyxoma peritonei
     Dosage: HYPERTHERMIC INTRAPERITONEAL CHEMOTHERAPY
     Route: 033
  4. MITOMYCIN [Suspect]
     Active Substance: MITOMYCIN
     Indication: Appendix cancer
     Dosage: HYPERTHERMIC INTRAPERITONEAL CHEMOTHERAPY
     Route: 033
  5. DOXORUBICIN [Suspect]
     Active Substance: DOXORUBICIN
     Indication: Appendix cancer
     Dosage: HYPERTHERMIC INTRAPERITONEAL CHEMOTHERAPY
     Route: 033

REACTIONS (3)
  - Hyperammonaemia [Unknown]
  - Hyperbilirubinaemia [Recovering/Resolving]
  - Ischaemic hepatitis [Recovering/Resolving]
